FAERS Safety Report 9825452 (Version 1)
Quarter: 2014Q1

REPORT INFORMATION
  Report Type: Spontaneous
  Country: US (occurrence: US)
  Receive Date: 20140117
  Receipt Date: 20140117
  Transmission Date: 20141002
  Serious: Yes (Other)
  Sender: FDA-Public Use
  Company Number: US-PFIZER INC-2014013788

PATIENT
  Age: 69 Year
  Sex: Female
  Weight: 48.98 kg

DRUGS (7)
  1. PREMARIN [Suspect]
     Indication: VULVOVAGINAL DRYNESS
     Dosage: 1 G, 2X/WEEK
     Route: 067
     Dates: start: 2005
  2. PREMARIN [Suspect]
     Indication: PELVIC DISCOMFORT
  3. REVLIMID [Concomitant]
     Dosage: 15 MG, UNK
  4. DEXAMETHASONE [Concomitant]
     Dosage: 4 MG, UNK
  5. LYRICA [Concomitant]
     Dosage: 150 MG, UNK
  6. LEVOTHYROXINE [Concomitant]
     Dosage: 0.025 MG, UNK
  7. OMEGA 3 FATTY ACIDS [Concomitant]
     Dosage: UNK

REACTIONS (1)
  - Gallbladder disorder [Not Recovered/Not Resolved]
